FAERS Safety Report 12943328 (Version 1)
Quarter: 2016Q4

REPORT INFORMATION
  Report Type: Spontaneous
  Country: US (occurrence: US)
  Receive Date: 20161115
  Receipt Date: 20161115
  Transmission Date: 20170207
  Serious: No
  Sender: FDA-Public Use
  Company Number: US-NOVOPROD-503401

PATIENT
  Age: 86 Year
  Sex: Female

DRUGS (2)
  1. COUMADINE [Concomitant]
     Active Substance: WARFARIN SODIUM
     Indication: CARDIAC DISORDER
     Route: 048
  2. VAGIFEM LD [Suspect]
     Active Substance: ESTRADIOL
     Indication: HYPERTONIC BLADDER
     Route: 067

REACTIONS (3)
  - Malaise [Unknown]
  - Incontinence [Not Recovered/Not Resolved]
  - Hypertonic bladder [Not Recovered/Not Resolved]

NARRATIVE: CASE EVENT DATE: 20160618
